FAERS Safety Report 5116804-6 (Version None)
Quarter: 2006Q3

REPORT INFORMATION
  Report Type: 
  Country: None (occurrence: None)
  Receive Date: 20060928
  Receipt Date: 20060904
  Transmission Date: 20061208
  Serious: Yes (Other)
  Sender: FDA-Public Use
  Company Number: US-BRISTOL-MYERS SQUIBB COMPANY-13517958

PATIENT
  Age: 19 Year
  Sex: Male

DRUGS (1)
  1. ABILIFY [Suspect]

REACTIONS (2)
  - AGITATION [None]
  - HOMICIDE [None]
